FAERS Safety Report 4331206-8 (Version None)
Quarter: 2004Q1

REPORT INFORMATION
  Report Type: 
  Country: None (occurrence: None)
  Receive Date: 20040331
  Receipt Date: 20040319
  Transmission Date: 20041129
  Serious: Yes (Hospitalization)
  Sender: FDA-Public Use
  Company Number: 03P-118-0244811-00

PATIENT
  Age: 42 Year
  Sex: Female

DRUGS (1)
  1. MERIDIA [Suspect]
     Indication: WEIGHT CONTROL
     Dosage: 15 MG, 1 IN 1 D, PER ORAL
     Route: 048

REACTIONS (2)
  - ELECTROCARDIOGRAM QT PROLONGED [None]
  - VENTRICULAR FIBRILLATION [None]
